FAERS Safety Report 8406210-0 (Version None)
Quarter: 2012Q2

REPORT INFORMATION
  Report Type: 
  Country: None (occurrence: None)
  Receive Date: 20120604
  Receipt Date: 20120522
  Transmission Date: 20120825
  Serious: Yes (Other)
  Sender: FDA-Public Use
  Company Number: US-JNJFOC-20120518398

PATIENT
  Sex: Female
  Weight: 98.88 kg

DRUGS (7)
  1. INVEGA [Suspect]
     Route: 048
     Dates: start: 20070101, end: 20120301
  2. INVEGA [Suspect]
     Indication: SCHIZOPHRENIA
     Route: 048
     Dates: start: 20120301
  3. INVEGA [Suspect]
     Route: 048
     Dates: start: 20070101, end: 20120301
  4. NAVANE [Concomitant]
     Indication: SCHIZOPHRENIA
     Route: 065
  5. SIMVASTATIN [Suspect]
     Indication: BLOOD CHOLESTEROL
     Route: 048
     Dates: start: 20100101
  6. INVEGA [Suspect]
     Indication: BIPOLAR DISORDER
     Route: 048
     Dates: start: 20120301
  7. LURASIDONE [Suspect]
     Indication: SCHIZOPHRENIA
     Route: 065
     Dates: start: 20120301, end: 20120301

REACTIONS (7)
  - BLOOD CHOLESTEROL INCREASED [None]
  - WEIGHT DECREASED [None]
  - MOOD SWINGS [None]
  - PRODUCT QUALITY ISSUE [None]
  - HYPOTHALAMO-PITUITARY DISORDER [None]
  - ANAPHYLACTIC SHOCK [None]
  - MYALGIA [None]
